FAERS Safety Report 4363059-6 (Version None)
Quarter: 2004Q2

REPORT INFORMATION
  Report Type: 
  Country: None (occurrence: None)
  Receive Date: 20040518
  Receipt Date: 20040503
  Transmission Date: 20050107
  Serious: Yes (Life-Threatening)
  Sender: FDA-Public Use
  Company Number: NL-JNJFOC-20040502823

PATIENT
  Age: 4 Week
  Sex: Female

DRUGS (1)
  1. DAKTARIN (MICONAZOLE) GEL [Suspect]
     Indication: CANDIDIASIS
     Dosage: 1 G, 1 IN 1 DAY, ORAL
     Route: 048
     Dates: start: 19980619, end: 19980624

REACTIONS (1)
  - CHOKING [None]
